FAERS Safety Report 9627975 (Version 1)
Quarter: 2013Q4

REPORT INFORMATION
  Report Type: Spontaneous
  Country: US (occurrence: US)
  Receive Date: 20131016
  Receipt Date: 20131016
  Transmission Date: 20140711
  Serious: Yes (Hospitalization)
  Sender: FDA-Public Use
  Company Number: US-ALLERGAN-1315983US

PATIENT
  Age: 35 Year
  Sex: Female

DRUGS (12)
  1. BOTOX [Suspect]
     Indication: MIGRAINE
     Dosage: UNK UNK, SINGLE
     Route: 030
     Dates: start: 201306, end: 201306
  2. BOTOX [Suspect]
     Indication: IMPAIRED GASTRIC EMPTYING
  3. ADVAIR [Concomitant]
     Indication: ASTHMA
     Dosage: UNK UNK, PRN
     Route: 048
  4. PROZAC [Concomitant]
     Indication: PRODUCT USED FOR UNKNOWN INDICATION
     Dosage: UNK
     Route: 048
  5. XANAX [Concomitant]
     Indication: PRODUCT USED FOR UNKNOWN INDICATION
     Dosage: UNK
     Route: 048
  6. ACIPHEX [Concomitant]
     Indication: IMPAIRED GASTRIC EMPTYING
     Dosage: UNK
     Route: 048
  7. ZOFRAN                             /00955301/ [Concomitant]
     Indication: NAUSEA
     Dosage: UNK UNK, PRN
     Route: 048
  8. CAMBIA [Concomitant]
     Indication: MIGRAINE
     Dosage: UNK UNK, PRN
     Route: 048
  9. PHENERGAN                          /00033001/ [Concomitant]
     Indication: NAUSEA
     Dosage: UNK UNK, PRN
  10. MIGRANAL NASAL SPRAY NOS [Concomitant]
     Indication: MIGRAINE
     Dosage: UNK, PRN
     Route: 045
  11. LANEZ OR LANZEX LAXATIVE (PRESUMED LANE^S LAXATIVE) [Concomitant]
     Indication: IMPAIRED GASTRIC EMPTYING
     Dosage: UNK
  12. ULTRAM                             /00599202/ [Concomitant]
     Indication: MIGRAINE
     Dosage: UNK
     Route: 048
     Dates: end: 201309

REACTIONS (8)
  - Abdominal distension [Unknown]
  - Dyspnoea [Unknown]
  - Abdominal distension [Unknown]
  - Convulsion [Recovered/Resolved]
  - Hyperhidrosis [Unknown]
  - Vomiting [Recovered/Resolved]
  - Staring [Unknown]
  - Off label use [Unknown]
